FAERS Safety Report 14115763 (Version 2)
Quarter: 2018Q3

REPORT INFORMATION
  Report Type: Spontaneous
  Country: US (occurrence: US)
  Receive Date: 20171023
  Receipt Date: 20180924
  Transmission Date: 20181010
  Serious: No
  Sender: FDA-Public Use
  Company Number: US-ALLERGAN-1734847US

PATIENT
  Age: 83 Year
  Sex: Male

DRUGS (1)
  1. LINZESS [Suspect]
     Active Substance: LINACLOTIDE
     Indication: IRRITABLE BOWEL SYNDROME
     Dosage: 72 ?G, QD
     Route: 048
     Dates: start: 20170803, end: 201708

REACTIONS (6)
  - Off label use [Unknown]
  - Flatulence [Unknown]
  - Depression [Unknown]
  - Sense of oppression [Unknown]
  - Drug dose omission [Unknown]
  - Diarrhoea [Unknown]

NARRATIVE: CASE EVENT DATE: 201708
